FAERS Safety Report 24653912 (Version 1)
Quarter: 2024Q4

REPORT INFORMATION
  Report Type: Spontaneous
  Country: US (occurrence: US)
  Receive Date: 20241122
  Receipt Date: 20241122
  Transmission Date: 20250114
  Serious: No
  Sender: TRAVERE THERAPEUTICS
  Company Number: US-TRAVERE-2024TVT01192

PATIENT
  Age: 59 Year
  Sex: Male

DRUGS (2)
  1. FILSPARI [Suspect]
     Active Substance: SPARSENTAN
     Indication: IgA nephropathy
     Route: 048
     Dates: start: 20241024
  2. FILSPARI [Suspect]
     Active Substance: SPARSENTAN
     Dosage: 200MG OF 2 TABLETS DIALY
     Route: 048
     Dates: start: 202411, end: 20241113

REACTIONS (6)
  - Abdominal pain [Unknown]
  - Dizziness [Unknown]
  - Fatigue [Unknown]
  - Mood altered [Unknown]
  - Insomnia [Unknown]
  - Discomfort [Unknown]
